FAERS Safety Report 4675512-6 (Version None)
Quarter: 2005Q2

REPORT INFORMATION
  Report Type: 
  Country: None (occurrence: None)
  Receive Date: 20050527
  Receipt Date: 20050330
  Transmission Date: 20051028
  Serious: No
  Sender: FDA-Public Use
  Company Number: US-BRISTOL-MYERS SQUIBB COMPANY-12916151

PATIENT
  Age: 39 Year
  Sex: Male

DRUGS (1)
  1. ABILIFY [Suspect]
     Dosage: DOSE DEC TO 20 MG/DAY
     Dates: start: 20030701

REACTIONS (1)
  - TREMOR [None]
